FAERS Safety Report 21788709 (Version 1)
Quarter: 2022Q4

REPORT INFORMATION
  Report Type: Report from Study
  Country: US (occurrence: None)
  Receive Date: 20221228
  Receipt Date: 20221228
  Transmission Date: 20230113
  Serious: Yes (Hospitalization)
  Sender: FDA-Public Use
  Company Number: US-Eisai Medical Research-EC-2022-128660

PATIENT
  Age: 73 Year
  Sex: Female

DRUGS (1)
  1. LENVIMA [Suspect]
     Active Substance: LENVATINIB
     Indication: Endometrial cancer
     Route: 048
     Dates: start: 20221117, end: 20221204

REACTIONS (11)
  - Schnitzler^s syndrome [Recovering/Resolving]
  - Hypertension [Recovering/Resolving]
  - Paraesthesia oral [Unknown]
  - Epistaxis [Unknown]
  - Cough [Unknown]
  - Dyspnoea [Unknown]
  - Confusional state [Unknown]
  - Memory impairment [Unknown]
  - Anxiety [Unknown]
  - Urinary tract infection [Recovering/Resolving]
  - Arthralgia [Not Recovered/Not Resolved]

NARRATIVE: CASE EVENT DATE: 20221101
